FAERS Safety Report 8889892 (Version 1)
Quarter: 2012Q4

REPORT INFORMATION
  Report Type: Report from Study
  Country: FR (occurrence: US)
  Receive Date: 20121107
  Receipt Date: 20121107
  Transmission Date: 20130627
  Serious: Yes (Other)
  Sender: FDA-Public Use
  Company Number: US-SANOFI-AVENTIS-200610805GDDC

PATIENT
  Age: 52 Year
  Sex: Female
  Weight: 82.7 kg

DRUGS (4)
  1. DOCETAXEL [Suspect]
     Indication: BREAST CANCER FEMALE NOS
     Route: 042
     Dates: start: 20001122, end: 20010308
  2. CYTOXAN [Suspect]
     Indication: BREAST CANCER FEMALE NOS
     Route: 042
     Dates: start: 20001122, end: 20010308
  3. ADRIAMYCIN [Suspect]
     Indication: BREAST CANCER FEMALE NOS
     Route: 042
     Dates: start: 20001122, end: 20010308
  4. NO MENTION OF CONCOMITANT DRUG [Concomitant]

REACTIONS (1)
  - Cardiomyopathy [Not Recovered/Not Resolved]
